FAERS Safety Report 6124675-4 (Version None)
Quarter: 2009Q1

REPORT INFORMATION
  Report Type: 
  Country: None (occurrence: None)
  Receive Date: 20090319
  Receipt Date: 20090310
  Transmission Date: 20090719
  Serious: Yes (Death, Hospitalization)
  Sender: FDA-Public Use
  Company Number: GB-PFIZER INC-2007032067

PATIENT

DRUGS (1)
  1. SUNITINIB MALATE [Suspect]
     Indication: RENAL CELL CARCINOMA
     Dosage: 50 MG, 1X/DAY
     Dates: start: 20070321, end: 20070417

REACTIONS (4)
  - DISEASE PROGRESSION [None]
  - DYSARTHRIA [None]
  - GAIT DISTURBANCE [None]
  - METASTATIC RENAL CELL CARCINOMA [None]
